FAERS Safety Report 7764542-3 (Version None)
Quarter: 2011Q3

REPORT INFORMATION
  Report Type: 
  Country: None (occurrence: None)
  Receive Date: 20110921
  Receipt Date: 20110915
  Transmission Date: 20111222
  Serious: Yes (Death)
  Sender: FDA-Public Use
  Company Number: BR-PFIZER INC-2011218625

PATIENT
  Age: 70 Year
  Sex: Male

DRUGS (2)
  1. XALATAN [Suspect]
     Route: 047
  2. LATANOPROST [Suspect]
     Route: 047

REACTIONS (1)
  - DEATH [None]
